FAERS Safety Report 22921387 (Version 2)
Quarter: 2024Q3

REPORT INFORMATION
  Report Type: Spontaneous
  Country: US (occurrence: None)
  Receive Date: 20230908
  Receipt Date: 20240906
  Transmission Date: 20241017
  Serious: No
  Sender: DOMPE FARMACEUTICI
  Company Number: US-FARMAPROD-202306-1697

PATIENT
  Sex: Female

DRUGS (21)
  1. OXERVATE [Suspect]
     Active Substance: CENEGERMIN-BKBJ
     Indication: Neurotrophic keratopathy
     Route: 047
  2. OXERVATE [Suspect]
     Active Substance: CENEGERMIN-BKBJ
  3. OXERVATE [Suspect]
     Active Substance: CENEGERMIN-BKBJ
  4. OXERVATE [Suspect]
     Active Substance: CENEGERMIN-BKBJ
  5. PROBIOTICS NOS [Concomitant]
     Active Substance: PROBIOTICS NOS
     Dosage: 10 BILLION CELL
  6. ZINC-VITAMIN C [Concomitant]
     Dosage: 90 MG-50 MG
  7. VITAMIN D3 [Concomitant]
     Active Substance: CHOLECALCIFEROL
  8. VITAMIN C [Concomitant]
     Active Substance: ASCORBIC ACID
  9. COMPLEX B-100 [Concomitant]
  10. GENTEAL TEARS [Concomitant]
     Active Substance: DEXTRAN 70\HYPROMELLOSE 2910 (4000 MPA.S)
     Dosage: 0.1%-0.3%
  11. TYRVAYA [Concomitant]
     Active Substance: VARENICLINE TARTRATE
     Dosage: 0.03 / SPRAY
  12. CEQUA [Concomitant]
     Active Substance: CYCLOSPORINE
  13. REFRESH CLASSIC [Concomitant]
     Active Substance: POLYVINYL ALCOHOL\POVIDONE
  14. ZYRTEC-D [Concomitant]
     Active Substance: CETIRIZINE HYDROCHLORIDE\PSEUDOEPHEDRINE HYDROCHLORIDE
     Dosage: 5 MG-120 MG, FOR 12 HOURS
  15. PRIMIDONE [Concomitant]
     Active Substance: PRIMIDONE
  16. ACYCLOVIR [Concomitant]
     Active Substance: ACYCLOVIR
  17. LEVOTHYROXINE SODIUM [Concomitant]
     Active Substance: LEVOTHYROXINE SODIUM
  18. GABAPENTIN [Concomitant]
     Active Substance: GABAPENTIN
  19. HYDROCODONE BITARTRATE [Concomitant]
     Active Substance: HYDROCODONE BITARTRATE
  20. ATORVASTATIN CALCIUM [Concomitant]
     Active Substance: ATORVASTATIN CALCIUM
  21. PROPRANOLOL HYDROCHLORIDE [Concomitant]
     Active Substance: PROPRANOLOL HYDROCHLORIDE

REACTIONS (5)
  - Product storage error [Unknown]
  - Intentional product misuse [Unknown]
  - Product dose omission issue [Unknown]
  - Lacrimation increased [Unknown]
  - Eyelid irritation [Unknown]
